FAERS Safety Report 21976571 (Version 6)
Quarter: 2023Q2

REPORT INFORMATION
  Report Type: Spontaneous
  Country: US (occurrence: US)
  Receive Date: 20230210
  Receipt Date: 20230501
  Transmission Date: 20230722
  Serious: No
  Sender: FDA-Public Use
  Company Number: US-PFIZER INC-202300058283

PATIENT
  Age: 12 Year
  Sex: Male
  Weight: 39.46 kg

DRUGS (1)
  1. GENOTROPIN [Suspect]
     Active Substance: SOMATROPIN
     Indication: Growth hormone deficiency
     Dosage: 1.4 MG, ONCE DAILY (BY INJECTION)
     Dates: start: 20230204

REACTIONS (6)
  - Poor quality device used [Unknown]
  - Device use issue [Unknown]
  - Drug dose omission by device [Unknown]
  - Device-device incompatibility [Unknown]
  - Device leakage [Unknown]
  - Product odour abnormal [Unknown]

NARRATIVE: CASE EVENT DATE: 20230204
